FAERS Safety Report 8504658 (Version 3)
Quarter: 2012Q4

REPORT INFORMATION
  Report Type: 
  Country: JP (occurrence: JP)
  Receive Date: 20120411
  Receipt Date: 20121004
  Transmission Date: 20130627
  Serious: Yes (Death)
  Sender: FDA-Public Use
  Company Number: JP-PFIZER INC-2012086857

PATIENT
  Age: 59 Year
  Sex: Female
  Weight: 42 kg

DRUGS (12)
  1. TEMSIROLIMUS [Suspect]
     Indication: RENAL CELL CARCINOMA
     Dosage: 25 mg, weekly
     Route: 042
     Dates: start: 20110913
  2. TEMSIROLIMUS [Suspect]
     Dosage: 25 mg, weekly
     Route: 042
     Dates: start: 20110920
  3. TEMSIROLIMUS [Suspect]
     Dosage: 25 mg, weekly
     Route: 042
     Dates: start: 20110927
  4. TEMSIROLIMUS [Suspect]
     Dosage: 25 mg, weekly
     Route: 042
     Dates: start: 20111004
  5. TEMSIROLIMUS [Suspect]
     Dosage: 25 mg, weekly
     Route: 042
     Dates: start: 20111011, end: 20111101
  6. TEMSIROLIMUS [Suspect]
     Dosage: 20 mg, weekly
     Route: 042
     Dates: start: 20111122, end: 20111227
  7. TEMSIROLIMUS [Suspect]
     Dosage: 15 mg, weekly
     Route: 042
     Dates: start: 20120124, end: 20120207
  8. POLARAMINE [Concomitant]
     Dosage: 5 mg, 1x/day
     Route: 042
  9. MOBIC [Concomitant]
     Dosage: 10 mg, 1x/day
     Route: 048
     Dates: start: 20110902
  10. TAKEPRON [Concomitant]
     Dosage: 15 mg, 1x/day
     Dates: start: 20110902
  11. MAGMITT [Concomitant]
     Dosage: 750 mg, 3x/day
     Route: 048
     Dates: start: 20110902
  12. FERROMIA [Concomitant]
     Dosage: 100 mg, 2x/day
     Dates: start: 20110912

REACTIONS (2)
  - Disease progression [Fatal]
  - Renal cell carcinoma [Fatal]
